FAERS Safety Report 10010558 (Version 4)
Quarter: 2016Q3

REPORT INFORMATION
  Report Type: Spontaneous
  Country: US (occurrence: US)
  Receive Date: 20140314
  Receipt Date: 20160906
  Transmission Date: 20161108
  Serious: Yes (Death, Hospitalization)
  Sender: FDA-Public Use
  Company Number: US-PFIZER INC-2014070469

PATIENT
  Age: 83 Year
  Sex: Female
  Weight: 68.27 kg

DRUGS (1)
  1. REVATIO [Suspect]
     Active Substance: SILDENAFIL CITRATE
     Indication: PULMONARY HYPERTENSION
     Dosage: 20 MG, 3X/DAY
     Route: 048
     Dates: start: 2011, end: 20160821

REACTIONS (10)
  - Oxygen saturation decreased [Unknown]
  - Weight increased [Not Recovered/Not Resolved]
  - Disease progression [Not Recovered/Not Resolved]
  - Blood sodium increased [Unknown]
  - Cardiac failure congestive [Not Recovered/Not Resolved]
  - Haemoglobin decreased [Unknown]
  - Respiratory arrest [Unknown]
  - Death [Fatal]
  - Fluid retention [Not Recovered/Not Resolved]
  - Dysphagia [Not Recovered/Not Resolved]

NARRATIVE: CASE EVENT DATE: 20140228
